FAERS Safety Report 8126118-8 (Version None)
Quarter: 2012Q1

REPORT INFORMATION
  Report Type: 
  Country: None (occurrence: None)
  Receive Date: 20120209
  Receipt Date: 20120202
  Transmission Date: 20120608
  Serious: Yes (Disabling, Other)
  Sender: FDA-Public Use
  Company Number: PHHY2012AT009522

PATIENT
  Age: 79 Year
  Sex: Male

DRUGS (1)
  1. ZOMETA [Suspect]
     Indication: MULTIPLE MYELOMA
     Route: 042
     Dates: start: 20100301, end: 20110701

REACTIONS (14)
  - ORAL MUCOSAL ERYTHEMA [None]
  - OSTEOMYELITIS [None]
  - OSTEONECROSIS OF JAW [None]
  - EXPOSED BONE IN JAW [None]
  - FUSOBACTERIUM INFECTION [None]
  - SWELLING [None]
  - PRIMARY SEQUESTRUM [None]
  - BACTERIAL INFECTION [None]
  - PURULENT DISCHARGE [None]
  - GINGIVAL INFECTION [None]
  - BONE LESION [None]
  - PAIN IN JAW [None]
  - PEPTOSTREPTOCOCCUS INFECTION [None]
  - SOFT TISSUE INFECTION [None]
